FAERS Safety Report 9806912 (Version 1)
Quarter: 2014Q1

REPORT INFORMATION
  Report Type: Spontaneous
  Country: FR (occurrence: FR)
  Receive Date: 20140109
  Receipt Date: 20140109
  Transmission Date: 20141002
  Serious: Yes (Hospitalization)
  Sender: FDA-Public Use
  Company Number: FR-009507513-1401FRA001217

PATIENT
  Age: 54 Year
  Sex: Female
  Weight: 62 kg

DRUGS (4)
  1. EMEND [Suspect]
     Dosage: UNK
     Route: 048
     Dates: start: 20131202, end: 20131202
  2. DETICENE [Suspect]
     Dosage: UNK
     Route: 042
     Dates: start: 20131202, end: 20131202
  3. ZOMETA [Suspect]
     Dosage: 1 DF, QD
     Route: 042
  4. ZOPHREN (ONDANSETRON HYDROCHLORIDE) [Concomitant]

REACTIONS (1)
  - Acute generalised exanthematous pustulosis [Recovered/Resolved]
